FAERS Safety Report 5797840-3 (Version None)
Quarter: 2008Q3

REPORT INFORMATION
  Report Type: 
  Country: None (occurrence: None)
  Receive Date: 20080702
  Receipt Date: 20080624
  Transmission Date: 20090109
  Serious: Yes (Hospitalization)
  Sender: FDA-Public Use
  Company Number: US-JNJFOC-20080606699

PATIENT
  Age: 40 Year
  Sex: Female

DRUGS (1)
  1. PREZISTA [Suspect]
     Indication: HIV INFECTION
     Route: 048

REACTIONS (2)
  - IMMUNE RECONSTITUTION SYNDROME [None]
  - PNEUMOCYSTIS JIROVECI PNEUMONIA [None]
